FAERS Safety Report 13496180 (Version 1)
Quarter: 2017Q2

REPORT INFORMATION
  Report Type: Spontaneous
  Country: IT (occurrence: IT)
  Receive Date: 20170428
  Receipt Date: 20170428
  Transmission Date: 20170830
  Serious: Yes (Hospitalization)
  Sender: FDA-Public Use
  Company Number: IT-PFIZER INC-2017184685

PATIENT
  Age: 66 Year
  Sex: Male

DRUGS (3)
  1. LORAZEPAM. [Suspect]
     Active Substance: LORAZEPAM
     Indication: DRUG USE DISORDER
     Dosage: 27.5 MG, TOTAL
     Route: 048
     Dates: start: 20170328, end: 20170328
  2. ALPRAZOLAM. [Suspect]
     Active Substance: ALPRAZOLAM
     Indication: DRUG USE DISORDER
     Dosage: 20 MG, TOTAL
     Route: 048
     Dates: start: 20170328, end: 20170328
  3. LAROXYL [Suspect]
     Active Substance: AMITRIPTYLINE
     Indication: DRUG USE DISORDER
     Dosage: 10 ML, TOTAL
     Route: 048
     Dates: start: 20170328, end: 20170328

REACTIONS (4)
  - Sopor [Unknown]
  - Overdose [Unknown]
  - Tachycardia [Unknown]
  - Drug use disorder [Unknown]

NARRATIVE: CASE EVENT DATE: 20170328
